FAERS Safety Report 19012566 (Version 1)
Quarter: 2021Q1

REPORT INFORMATION
  Report Type: Spontaneous
  Country: DE (occurrence: DE)
  Receive Date: 20210315
  Receipt Date: 20210315
  Transmission Date: 20210420
  Serious: Yes (Other)
  Sender: FDA-Public Use
  Company Number: NVSC2021DE054027

PATIENT
  Sex: Male

DRUGS (2)
  1. SANDIMMUN OPTORAL [Suspect]
     Active Substance: CYCLOSPORINE
     Indication: GLOMERULONEPHRITIS MINIMAL LESION
     Dosage: 50 MG (75 MG/DAY)
     Route: 065
     Dates: start: 202101
  2. SANDIMMUN OPTORAL [Suspect]
     Active Substance: CYCLOSPORINE
     Dosage: 25 MG (25 MG + 50 MG 75 MG/DAY)
     Route: 065
     Dates: start: 20210226

REACTIONS (7)
  - Infection [Unknown]
  - Condition aggravated [Not Recovered/Not Resolved]
  - Fungaemia [Unknown]
  - Full blood count decreased [Unknown]
  - Disease recurrence [Unknown]
  - Glomerulonephritis minimal lesion [Not Recovered/Not Resolved]
  - Immunosuppression [Unknown]
